FAERS Safety Report 8790984 (Version 3)
Quarter: 2014Q2

REPORT INFORMATION
  Report Type: Spontaneous
  Country: US (occurrence: None)
  Receive Date: 20120907
  Receipt Date: 20140624
  Transmission Date: 20141212
  Serious: Yes (Hospitalization, Other)
  Sender: FDA-Public Use
  Company Number: 1396770

PATIENT
  Age: 69 Year
  Sex: Female
  Weight: 65 kg

DRUGS (3)
  1. SODIUM CHLORIDE [Suspect]
     Indication: PRODUCT USED FOR UNKNOWN INDICATION
  2. CLEOCIN /00166002/ [Suspect]
     Indication: PRODUCT USED FOR UNKNOWN INDICATION
     Route: 042
     Dates: start: 20120714
  3. UNSPECIFIED INGREDIENT [Suspect]
     Indication: FLUSHING

REACTIONS (6)
  - Enterococcal infection [None]
  - Lung infection [None]
  - Bacterial infection [None]
  - Immune system disorder [None]
  - Wrong technique in drug usage process [None]
  - Suspected transmission of an infectious agent via product [None]
